FAERS Safety Report 16193744 (Version 2)
Quarter: 2019Q2

REPORT INFORMATION
  Report Type: Spontaneous
  Country: DE (occurrence: DE)
  Receive Date: 20190413
  Receipt Date: 20190503
  Transmission Date: 20190711
  Serious: Yes (Hospitalization)
  Sender: FDA-Public Use
  Company Number: DE-TEVA-2019-DE-1036335

PATIENT
  Age: 77 Year
  Sex: Male
  Weight: 69 kg

DRUGS (11)
  1. CLOZAPIN ABZ 25 MG TABLETTEN [Suspect]
     Active Substance: CLOZAPINE
     Indication: SLEEP DISORDER
  2. IPRATROPIUM TEVA 500 MIKROGRAMM / 2 ML L?SUNG F?R EINEN VERNEBLER [Concomitant]
     Dosage: 3 TIMES A DAY
  3. VITAMIN D3 1000 I.E. [Concomitant]
     Dosage: 1-0-0
  4. DOPADURA C 100/25MG [Concomitant]
     Dosage: 2-1,5-1,5-1
  5. RAMIPRIL ABZ 5 MG TABLETTEN [Suspect]
     Active Substance: RAMIPRIL
     Indication: HYPERTENSION
     Route: 048
  6. PREDNISOLON 5 MG [Concomitant]
     Active Substance: PREDNISOLONE
     Dosage: 1-0-0
  7. DOPADURA C 100/25MG [Concomitant]
  8. PANTOPRAZOLE SODIUM. [Concomitant]
     Active Substance: PANTOPRAZOLE SODIUM
     Dosage: 0-0-1
  9. CLOZAPIN ABZ 25 MG TABLETTEN [Suspect]
     Active Substance: CLOZAPINE
     Indication: PSYCHOTIC DISORDER
     Dosage: 0-0-0-1
     Route: 048
  10. ROPINIROL RETARD 8 MG [Concomitant]
     Dosage: 1-0-0-1
  11. ROPINIROL RETARD 2 MG [Concomitant]
     Dosage: 0-1-0-0

REACTIONS (2)
  - Pulmonary eosinophilia [Recovering/Resolving]
  - Pulmonary mass [Recovering/Resolving]

NARRATIVE: CASE EVENT DATE: 201712
